FAERS Safety Report 8802430 (Version 2)
Quarter: 2015Q2

REPORT INFORMATION
  Report Type: Report from Study
  Country: US (occurrence: US)
  Receive Date: 20120921
  Receipt Date: 20150624
  Transmission Date: 20150821
  Serious: Yes (Death)
  Sender: FDA-Public Use
  Company Number: US-ROCHE-1104664

PATIENT
  Sex: Male
  Weight: 81.8 kg

DRUGS (17)
  1. ACTIVASE [Concomitant]
     Active Substance: ALTEPLASE
     Route: 065
  2. DECADRON [Concomitant]
     Active Substance: DEXAMETHASONE
     Route: 042
  3. MORPHINE [Concomitant]
     Active Substance: MORPHINE
     Route: 065
  4. PROVIGIL [Concomitant]
     Active Substance: MODAFINIL
     Route: 065
  5. KEPPRA [Concomitant]
     Active Substance: LEVETIRACETAM
     Route: 065
  6. ATROPINE [Concomitant]
     Active Substance: ATROPINE
     Route: 042
  7. ATIVAN [Concomitant]
     Active Substance: LORAZEPAM
     Route: 065
  8. RIFAMPIN. [Concomitant]
     Active Substance: RIFAMPIN
     Route: 065
  9. TRAZODONE [Concomitant]
     Active Substance: TRAZODONE HYDROCHLORIDE
     Route: 065
  10. AVASTIN [Suspect]
     Active Substance: BEVACIZUMAB
     Indication: BRAIN NEOPLASM MALIGNANT
     Route: 042
  11. ZOFRAN [Concomitant]
     Active Substance: ONDANSETRON HYDROCHLORIDE
     Route: 065
  12. MINOCYCLINE HYDROCHLORIDE. [Concomitant]
     Active Substance: MINOCYCLINE HYDROCHLORIDE
  13. SERTRALINE [Concomitant]
     Active Substance: SERTRALINE HYDROCHLORIDE
     Route: 065
  14. IRINOTECAN [Concomitant]
     Active Substance: IRINOTECAN
     Route: 042
  15. TYLENOL [Concomitant]
     Active Substance: ACETAMINOPHEN
  16. SILVER SULFADIAZINE. [Concomitant]
     Active Substance: SILVER SULFADIAZINE
  17. ONDANSETRON [Concomitant]
     Active Substance: ONDANSETRON
     Route: 042

REACTIONS (10)
  - Vomiting [Unknown]
  - Muscle spasms [Unknown]
  - Fatigue [Unknown]
  - Diarrhoea [Unknown]
  - Nuclear magnetic resonance imaging abnormal [Unknown]
  - Death [Fatal]
  - Nausea [Unknown]
  - Pain [Unknown]
  - Oedema [Unknown]
  - Off label use [Unknown]
